FAERS Safety Report 19394378 (Version 1)
Quarter: 2021Q2

REPORT INFORMATION
  Report Type: Report from Study
  Country: DE (occurrence: DE)
  Receive Date: 20210609
  Receipt Date: 20210609
  Transmission Date: 20210717
  Serious: Yes (Hospitalization, Other)
  Sender: FDA-Public Use
  Company Number: DE-GW PHARMA-201905DEGW1460

PATIENT

DRUGS (9)
  1. EPIDIOLEX [Suspect]
     Active Substance: CANNABIDIOL
     Dosage: 12.90 MG/KG, 400 MILLIGRAM, QD (200MG?0?200MG)
     Dates: start: 201907
  2. FRISIUM [Suspect]
     Active Substance: CLOBAZAM
     Dosage: REDUCED DOSE
     Route: 065
     Dates: start: 201907
  3. VALPROIC ACID. [Suspect]
     Active Substance: VALPROIC ACID
     Indication: LENNOX-GASTAUT SYNDROME
     Dosage: 600 MILLIGRAM, QD (200?200?200MG)
     Route: 065
     Dates: start: 2014
  4. FRISIUM [Suspect]
     Active Substance: CLOBAZAM
     Indication: LENNOX-GASTAUT SYNDROME
     Dosage: 10 MILLIGRAM, QD (2.5?0?7.5MG)
     Route: 065
     Dates: start: 20190301
  5. VIMPAT [Concomitant]
     Active Substance: LACOSAMIDE
     Dosage: 100 MILLIGRAM, BID
     Route: 065
     Dates: start: 2014
  6. VIMPAT [Concomitant]
     Active Substance: LACOSAMIDE
     Indication: PRODUCT USED FOR UNKNOWN INDICATION
     Dosage: 300 MILLIGRAM, QD (150?0?150MG)
     Route: 065
     Dates: start: 2014
  7. EPIDIOLEX [Suspect]
     Active Substance: CANNABIDIOL
     Indication: LENNOX-GASTAUT SYNDROME
     Dosage: 6.45 MG/KG, 200 MILLIGRAM, QD (100MG?0?100MG)
     Dates: start: 20190327, end: 201907
  8. VALPROIC ACID. [Suspect]
     Active Substance: VALPROIC ACID
     Dosage: 1800 MILLIGRAM, QD (600?600?600MG)
     Route: 065
     Dates: start: 201907
  9. LEVETIRACETAM. [Concomitant]
     Active Substance: LEVETIRACETAM
     Indication: PRODUCT USED FOR UNKNOWN INDICATION
     Dosage: 1000 MILLIGRAM, QD (500?0?500MG)
     Route: 065
     Dates: start: 2012

REACTIONS (4)
  - Pneumonia aspiration [Recovered/Resolved]
  - Pneumonia aspiration [Recovered/Resolved]
  - Disturbance in attention [Unknown]
  - Sedation [Recovered/Resolved]

NARRATIVE: CASE EVENT DATE: 20190708
